FAERS Safety Report 23515708 (Version 2)
Quarter: 2024Q1

REPORT INFORMATION
  Report Type: Spontaneous
  Country: US (occurrence: US)
  Receive Date: 20240213
  Receipt Date: 20240214
  Transmission Date: 20240410
  Serious: No
  Sender: FDA-Public Use
  Company Number: US-HALEON-USCH2024007012

PATIENT
  Age: 56 Year
  Sex: Female

DRUGS (1)
  1. FLONASE SENSIMIST ALLERGY RELIEF [Suspect]
     Active Substance: FLUTICASONE FUROATE
     Indication: Exposure to allergen
     Dosage: UNK
     Dates: start: 202312, end: 202401

REACTIONS (2)
  - Poor quality product administered [Unknown]
  - Product complaint [Unknown]
